FAERS Safety Report 25463595 (Version 1)
Quarter: 2025Q2

REPORT INFORMATION
  Report Type: Spontaneous
  Country: US (occurrence: US)
  Receive Date: 20250620
  Receipt Date: 20250620
  Transmission Date: 20250716
  Serious: No
  Sender: REGENERON
  Company Number: US-REGENERON PHARMACEUTICALS, INC.-2025-072045

PATIENT
  Sex: Female

DRUGS (1)
  1. EYLEA HD [Suspect]
     Active Substance: AFLIBERCEPT
     Indication: Product used for unknown indication
     Dosage: ONCE A MONTH FOR THE LAST 3 MONTHS (FORMULATION: HD VIAL)
     Dates: start: 2025

REACTIONS (4)
  - Eye haemorrhage [Unknown]
  - Asthenopia [Unknown]
  - Visual impairment [Unknown]
  - Eye pain [Unknown]

NARRATIVE: CASE EVENT DATE: 20250101
